FAERS Safety Report 24921579 (Version 1)
Quarter: 2025Q1

REPORT INFORMATION
  Report Type: Spontaneous
  Country: US (occurrence: US)
  Receive Date: 20250204
  Receipt Date: 20250204
  Transmission Date: 20250409
  Serious: Yes (Death, Other)
  Sender: CHATTEM
  Company Number: US-OPELLA-2025OHG002672

PATIENT
  Age: 74 Year
  Sex: Male

DRUGS (1)
  1. GOLD BOND ORIGINAL STRENGTH [Suspect]
     Active Substance: MENTHOL
     Indication: Product used for unknown indication

REACTIONS (2)
  - Metastatic mesothelioma [Fatal]
  - Desmoplastic mesothelioma [Fatal]
